FAERS Safety Report 5576670-1 (Version None)
Quarter: 2007Q4

REPORT INFORMATION
  Report Type: 
  Country: None (occurrence: None)
  Receive Date: 20071228
  Receipt Date: 20071221
  Transmission Date: 20080405
  Serious: Yes (Other)
  Sender: FDA-Public Use
  Company Number: BE-MERCK-0712BEL00008

PATIENT
  Age: 60 Year
  Sex: Male
  Weight: 107 kg

DRUGS (6)
  1. COZAAR [Suspect]
     Indication: HYPERTENSION
     Route: 048
     Dates: start: 19970918
  2. SIMVASTATIN [Concomitant]
     Indication: HYPERCHOLESTEROLAEMIA
     Route: 048
     Dates: start: 19920321
  3. METFORMIN [Concomitant]
     Indication: DIABETES MELLITUS
     Route: 048
     Dates: start: 20041122
  4. GLIQUIDONE [Concomitant]
     Indication: DIABETES MELLITUS
     Route: 048
     Dates: start: 20041122
  5. METOPROLOL TARTRATE [Concomitant]
     Indication: HYPERTENSION
     Route: 048
     Dates: start: 19970225
  6. MOXONIDINE [Concomitant]
     Indication: HYPERTENSION
     Route: 048
     Dates: start: 20011003

REACTIONS (2)
  - DIABETES MELLITUS [None]
  - PERIPHERAL VASCULAR DISORDER [None]
